FAERS Safety Report 4662727-6 (Version None)
Quarter: 2005Q2

REPORT INFORMATION
  Report Type: 
  Country: None (occurrence: None)
  Receive Date: 20050516
  Receipt Date: 20050425
  Transmission Date: 20051028
  Serious: Yes (Other)
  Sender: FDA-Public Use
  Company Number: IN-GLAXOSMITHKLINE-B0379827A

PATIENT
  Age: 31 Year
  Sex: Male

DRUGS (3)
  1. CHLORPROMAZINE [Suspect]
     Dosage: 200MG PER DAY
     Route: 065
  2. HALOPERIDOL [Suspect]
     Dosage: 10MG PER DAY
     Route: 065
  3. VALPROATE SODIUM [Suspect]
     Indication: BIPOLAR DISORDER
     Dosage: 600MG PER DAY
     Route: 065
     Dates: start: 19980101

REACTIONS (20)
  - ABDOMINAL PAIN [None]
  - ABDOMINAL TENDERNESS [None]
  - BLOOD AMYLASE INCREASED [None]
  - BLOOD CHOLESTEROL INCREASED [None]
  - BLOOD GLUCOSE INCREASED [None]
  - BLOOD KETONE BODY [None]
  - BLOOD TRIGLYCERIDES [None]
  - BLOOD TRIGLYCERIDES INCREASED [None]
  - DEHYDRATION [None]
  - DIABETIC KETOACIDOSIS [None]
  - DRUG INTERACTION [None]
  - DYSPNOEA [None]
  - GLUCOSE URINE PRESENT [None]
  - HIGH DENSITY LIPOPROTEIN DECREASED [None]
  - LOW DENSITY LIPOPROTEIN INCREASED [None]
  - PANCREATITIS ACUTE [None]
  - TACHYCARDIA [None]
  - TACHYPNOEA [None]
  - URINE KETONE BODY PRESENT [None]
  - VOMITING [None]
